FAERS Safety Report 9944882 (Version 1)
Quarter: 2014Q1

REPORT INFORMATION
  Report Type: Report from Study
  Country: US (occurrence: US)
  Receive Date: 20140303
  Receipt Date: 20140303
  Transmission Date: 20141002
  Serious: No
  Sender: FDA-Public Use
  Company Number: US-ABBVIE-13P-163-1054503-00

PATIENT
  Age: 32 Year
  Sex: Female
  Weight: 79.45 kg

DRUGS (4)
  1. HUMIRA [Suspect]
     Indication: RHEUMATOID ARTHRITIS
     Dates: start: 2010, end: 201202
  2. HUMIRA [Suspect]
     Dates: start: 201203, end: 20130216
  3. UNKNOWN BIRTH CONTROL [Concomitant]
     Indication: CONTRACEPTION
  4. ALEVE [Concomitant]
     Indication: PAIN

REACTIONS (2)
  - Drug ineffective [Recovered/Resolved]
  - Drug ineffective [Not Recovered/Not Resolved]
